FAERS Safety Report 6900634-6 (Version None)
Quarter: 2010Q3

REPORT INFORMATION
  Report Type: 
  Country: None (occurrence: None)
  Receive Date: 20100730
  Receipt Date: 20100717
  Transmission Date: 20110219
  Serious: Yes (Other)
  Sender: FDA-Public Use
  Company Number: 10-088-2

PATIENT
  Age: 66 Year

DRUGS (3)
  1. CEFAZOLIN [Suspect]
     Indication: CELLULITIS
     Dosage: IV
     Route: 042
  2. RIFAMPIN [Suspect]
     Dosage: 300 MG, BID IV
  3. CIPROFLOXACIN [Suspect]
     Indication: MYCOBACTERIUM ULCERANS INFECTION
     Dosage: 500 MG, BID

REACTIONS (4)
  - ERYTHEMA [None]
  - INDURATION [None]
  - PARADOXICAL DRUG REACTION [None]
  - SKIN GRAFT [None]
